FAERS Safety Report 5066363-1 (Version None)
Quarter: 2006Q3

REPORT INFORMATION
  Report Type: 
  Country: None (occurrence: None)
  Receive Date: 20060714
  Receipt Date: 20060512
  Transmission Date: 20061208
  Serious: No
  Sender: FDA-Public Use
  Company Number: 2006SP002095

PATIENT
  Age: 37 Year
  Sex: Female
  Weight: 68.0396 kg

DRUGS (8)
  1. LUNESTA [Suspect]
     Indication: INSOMNIA
     Dosage: 3 MG;PRN;ORAL
     Route: 048
     Dates: start: 20060501
  2. THEO-DUR [Concomitant]
  3. AMOXICILLIN + CLAVULANATE POTASSIUM [Concomitant]
  4. GUAIFENESIN [Concomitant]
  5. MULTIVITAMIN [Concomitant]
  6. CALCIUM WITH VITAMIN D [Concomitant]
  7. ALBUTEROL SPIROS [Concomitant]
  8. ALBUTEROL SULFATE [Concomitant]

REACTIONS (1)
  - DYSGEUSIA [None]
